FAERS Safety Report 13668859 (Version 2)
Quarter: 2017Q3

REPORT INFORMATION
  Report Type: Spontaneous
  Country: JP (occurrence: JP)
  Receive Date: 20170620
  Receipt Date: 20170802
  Transmission Date: 20171127
  Serious: Yes (Death, Hospitalization, Other)
  Sender: FDA-Public Use
  Company Number: JP-ELI_LILLY_AND_COMPANY-JP201706004336

PATIENT
  Age: 70 Year
  Sex: Female
  Weight: 52 kg

DRUGS (8)
  1. PACLITAXEL. [Concomitant]
     Active Substance: PACLITAXEL
     Indication: GASTRIC CANCER STAGE IV
     Dosage: 100 %, OTHER
     Route: 041
     Dates: start: 20160805, end: 201608
  2. CYRAMZA [Suspect]
     Active Substance: RAMUCIRUMAB
     Indication: GASTRIC CANCER STAGE IV
     Dosage: 100 %, OTHER
     Route: 041
     Dates: start: 20160805, end: 20161125
  3. FUROSEMIDE. [Concomitant]
     Active Substance: FUROSEMIDE
     Dosage: 1 DF, DAILY
     Route: 050
     Dates: start: 201601
  4. SPIRONOLACTONE. [Concomitant]
     Active Substance: SPIRONOLACTONE
     Dosage: 1 DF, DAILY
     Route: 050
     Dates: start: 201601
  5. PACLITAXEL. [Concomitant]
     Active Substance: PACLITAXEL
     Dosage: 80 %, UNK
     Route: 041
     Dates: start: 20160902, end: 20161118
  6. LEUCON                             /00300201/ [Concomitant]
     Active Substance: ADENINE
     Dosage: 1 DF, TID
     Route: 050
     Dates: start: 201601
  7. RACOL NF [Concomitant]
     Dosage: 200 ML, TID
     Route: 050
     Dates: start: 201601
  8. FAMOTIDINE. [Concomitant]
     Active Substance: FAMOTIDINE
     Dosage: 1 DF, BID
     Route: 050
     Dates: start: 201601

REACTIONS (5)
  - Multiple organ dysfunction syndrome [Fatal]
  - Gastric perforation [Fatal]
  - Peritonitis [Unknown]
  - Decreased appetite [Unknown]
  - Febrile neutropenia [Unknown]

NARRATIVE: CASE EVENT DATE: 201608
